FAERS Safety Report 5757510-4 (Version None)
Quarter: 2008Q2

REPORT INFORMATION
  Report Type: 
  Country: None (occurrence: None)
  Receive Date: 20080529
  Receipt Date: 20080520
  Transmission Date: 20081010
  Serious: Yes (Hospitalization)
  Sender: FDA-Public Use
  Company Number: LTI2008A00056

PATIENT
  Age: 75 Year
  Sex: Male

DRUGS (6)
  1. ACTOS [Suspect]
     Indication: TYPE 2 DIABETES MELLITUS
     Dosage: 30 MG (30 MG, 1 IN 1 D) ORAL
     Route: 048
     Dates: start: 20051214, end: 20071122
  2. COKENZEN 16/12.5 (CANDESARTAN CILEXETIL, HYDROCHLOROTHIAZIDE) [Suspect]
     Indication: HYPERTENSION
     Dosage: 1 TAB. (1 TAB., 1 IN 1 D) ORAL
     Route: 048
     Dates: start: 20020530, end: 20071122
  3. METFORMIN HCL [Concomitant]
  4. AMARYL [Concomitant]
  5. NOVONORM (REPAGLINIDE) [Concomitant]
  6. PREVISCAN (FLUINDIONE) [Concomitant]

REACTIONS (6)
  - ATRIAL FIBRILLATION [None]
  - CARDIOPULMONARY FAILURE [None]
  - DIFFUSE LARGE B-CELL LYMPHOMA [None]
  - OEDEMA PERIPHERAL [None]
  - RESPIRATORY TRACT INFECTION [None]
  - WEIGHT INCREASED [None]
